FAERS Safety Report 13001399 (Version 4)
Quarter: 2017Q3

REPORT INFORMATION
  Report Type: Report from Study
  Country: CA (occurrence: CA)
  Receive Date: 20161206
  Receipt Date: 20170818
  Transmission Date: 20171127
  Serious: Yes (Other)
  Sender: FDA-Public Use
  Company Number: PHHY2016CA166418

PATIENT
  Sex: Female

DRUGS (2)
  1. GILENYA [Suspect]
     Active Substance: FINGOLIMOD HYDROCHLORIDE
     Indication: PRODUCT USED FOR UNKNOWN INDICATION
     Dosage: UNK
     Route: 048
     Dates: start: 20160510
  2. GILENYA [Suspect]
     Active Substance: FINGOLIMOD HYDROCHLORIDE
     Dosage: UNK UNK, QOD
     Route: 048
     Dates: end: 20170601

REACTIONS (6)
  - Lymphocyte count decreased [Recovering/Resolving]
  - Neutropenia [Recovering/Resolving]
  - Injury [Unknown]
  - Underdose [Unknown]
  - White blood cell count decreased [Unknown]
  - Wound [Unknown]
